FAERS Safety Report 4947870-6 (Version None)
Quarter: 2006Q1

REPORT INFORMATION
  Report Type: 
  Country: None (occurrence: None)
  Receive Date: 20060314
  Receipt Date: 20060301
  Transmission Date: 20060701
  Serious: Yes (Other)
  Sender: FDA-Public Use
  Company Number: 2006032576

PATIENT
  Age: 45 Year
  Sex: Female
  Weight: 149.687 kg

DRUGS (4)
  1. CELEBREX [Suspect]
     Indication: ARTHRALGIA
     Dosage: (2 IN 1 D), ORAL
     Route: 048
     Dates: start: 19950101, end: 20010101
  2. PERCOCET [Concomitant]
  3. OXYCONTIN [Concomitant]
  4. DARVOCET [Concomitant]

REACTIONS (4)
  - CAREGIVER [None]
  - HYPERTENSION [None]
  - SICK RELATIVE [None]
  - STRESS [None]
